FAERS Safety Report 15703716 (Version 1)
Quarter: 2018Q4

REPORT INFORMATION
  Report Type: Spontaneous
  Country: US (occurrence: US)
  Receive Date: 20181207
  Receipt Date: 20181207
  Transmission Date: 20190205
  Serious: Yes (Death)
  Sender: FDA-Public Use
  Company Number: None

PATIENT
  Age: 30 Year
  Sex: Male

DRUGS (7)
  1. CLONIDINE. [Concomitant]
     Active Substance: CLONIDINE
  2. KRATOM [Suspect]
     Active Substance: MITRAGYNINE\HERBALS
  3. GABAPENTIN. [Concomitant]
     Active Substance: GABAPENTIN
  4. HYDROXYZINE [Concomitant]
     Active Substance: HYDROXYZINE HYDROCHLORIDE
  5. NALTREXONE [Concomitant]
     Active Substance: NALTREXONE
  6. BUPROPION. [Concomitant]
     Active Substance: BUPROPION
  7. DIAZEPAM. [Concomitant]
     Active Substance: DIAZEPAM

REACTIONS (2)
  - Toxicity to various agents [None]
  - Accidental death [None]

NARRATIVE: CASE EVENT DATE: 20160711
